FAERS Safety Report 24754622 (Version 1)
Quarter: 2024Q4

REPORT INFORMATION
  Report Type: Report from Study
  Country: US (occurrence: US)
  Receive Date: 20241219
  Receipt Date: 20241219
  Transmission Date: 20250115
  Serious: Yes (Other)
  Sender: ABBVIE
  Company Number: US-ABBVIE-6046891

PATIENT
  Age: 60 Year
  Sex: Male

DRUGS (2)
  1. RINVOQ [Suspect]
     Active Substance: UPADACITINIB
     Indication: Rheumatic disorder
     Dosage: FORM STRENGTH: 15 MG
     Route: 048
     Dates: end: 202312
  2. RINVOQ [Suspect]
     Active Substance: UPADACITINIB
     Indication: Rheumatic disorder
     Dosage: FORM STRENGTH: 15 MG
     Route: 048
     Dates: start: 20241015

REACTIONS (4)
  - Bone operation [Unknown]
  - Impaired healing [Unknown]
  - Surgery [Unknown]
  - Inflammation [Unknown]
